FAERS Safety Report 18734215 (Version 2)
Quarter: 2021Q1

REPORT INFORMATION
  Report Type: Report from Study
  Country: US (occurrence: US)
  Receive Date: 20210113
  Receipt Date: 20210115
  Transmission Date: 20210419
  Serious: Yes (Death)
  Sender: FDA-Public Use
  Company Number: NVSC2021US005420

PATIENT
  Age: 59 Year
  Sex: Female

DRUGS (1)
  1. ZARXIO [Suspect]
     Active Substance: FILGRASTIM-SNDZ
     Indication: PRODUCT USED FOR UNKNOWN INDICATION
     Dosage: UNK (ZARXIO INJ 300/0.5, QUANTITY 15 / DAY SUPPLY 30)
     Route: 065
     Dates: end: 202004

REACTIONS (1)
  - Death [Fatal]

NARRATIVE: CASE EVENT DATE: 20200619
